FAERS Safety Report 5834783-0 (Version None)
Quarter: 2008Q3

REPORT INFORMATION
  Report Type: 
  Country: None (occurrence: None)
  Receive Date: 20080804
  Receipt Date: 20080724
  Transmission Date: 20090109
  Serious: Yes (Hospitalization)
  Sender: FDA-Public Use
  Company Number: 163-21880-08070975

PATIENT
  Age: 63 Year
  Sex: Female

DRUGS (12)
  1. REVLIMID [Suspect]
     Indication: MYELODYSPLASTIC SYNDROME
     Dosage: 10 MG, 1 IN 1 D, ORAL
     Route: 048
     Dates: start: 20070810
  2. EXJADE (DEFERASIROX) (TABLETS) [Concomitant]
  3. POTASSIUM (POTASSIUM) (TABLETS) [Concomitant]
  4. LASIX [Concomitant]
  5. TYLENOL (PARACETAMOL) (TABLETS) [Concomitant]
  6. LEVAQUIN [Concomitant]
  7. XANAX [Concomitant]
  8. ZOFRAN [Concomitant]
  9. PRILOSEC [Concomitant]
  10. LORTAB [Concomitant]
  11. AMICAR (AMINOCAPROIC ACID) (TABLETS) [Concomitant]
  12. DIFLUCAN [Concomitant]

REACTIONS (4)
  - ANEURYSM [None]
  - IMMUNE SYSTEM DISORDER [None]
  - PLATELET COUNT DECREASED [None]
  - SKIN DISORDER [None]
